FAERS Safety Report 6066892-8 (Version None)
Quarter: 2009Q1

REPORT INFORMATION
  Report Type: 
  Country: None (occurrence: None)
  Receive Date: 20090205
  Receipt Date: 20080812
  Transmission Date: 20090719
  Serious: No
  Sender: FDA-Public Use
  Company Number: US-ABBOTT-08P-163-0470520-00

PATIENT
  Sex: Female
  Weight: 54.48 kg

DRUGS (6)
  1. VICODIN [Suspect]
     Indication: PAIN
     Dates: start: 20000101, end: 20000101
  2. PHENERGAN HCL [Concomitant]
     Indication: NAUSEA
     Route: 048
     Dates: start: 19990101
  3. ANTYLCORT [Concomitant]
     Indication: CROHN'S DISEASE
     Route: 048
     Dates: start: 20050101
  4. ROPINIROLE HYDROCHLORIDE [Concomitant]
     Indication: RESTLESS LEGS SYNDROME
     Route: 048
     Dates: start: 20060101
  5. MIRTAZAPINE [Concomitant]
     Indication: INSOMNIA
     Route: 048
     Dates: start: 20060101
  6. VENLAFAXINE HCL [Concomitant]
     Indication: STRESS
     Route: 048
     Dates: start: 20060101

REACTIONS (1)
  - HYPERSENSITIVITY [None]
